FAERS Safety Report 11453517 (Version 1)
Quarter: 2015Q3

REPORT INFORMATION
  Report Type: Spontaneous
  Country: US (occurrence: US)
  Receive Date: 20150831
  Receipt Date: 20150831
  Transmission Date: 20151125
  Serious: No
  Sender: FDA-Public Use
  Company Number: US-ELI_LILLY_AND_COMPANY-US200911006274

PATIENT
  Age: 52 Year
  Sex: Female

DRUGS (13)
  1. BUTALBITAL [Concomitant]
     Active Substance: BUTALBITAL
  2. OXYCODONE [Concomitant]
     Active Substance: OXYCODONE
  3. FIORICET [Concomitant]
     Active Substance: ACETAMINOPHEN\BUTALBITAL\CAFFEINE
  4. VITAMIN D3 [Concomitant]
     Active Substance: CHOLECALCIFEROL
  5. SKELAXIN [Concomitant]
     Active Substance: METAXALONE
  6. HYDROCODONE [Concomitant]
     Active Substance: HYDROCODONE
  7. FLAXSEED [Concomitant]
     Active Substance: FLAX SEED
  8. FISH OIL [Concomitant]
     Active Substance: FISH OIL
  9. PHENOBARBITAL. [Concomitant]
     Active Substance: PHENOBARBITAL
  10. NASONEX [Concomitant]
     Active Substance: MOMETASONE FUROATE
  11. ASA [Concomitant]
     Active Substance: ASPIRIN
  12. CYMBALTA [Suspect]
     Active Substance: DULOXETINE HYDROCHLORIDE
  13. MECLIZINE [Concomitant]
     Active Substance: MECLIZINE\MECLIZINE HYDROCHLORIDE

REACTIONS (1)
  - Drug interaction [Unknown]
